FAERS Safety Report 12173737 (Version 1)
Quarter: 2016Q1

REPORT INFORMATION
  Report Type: Spontaneous
  Country: US (occurrence: None)
  Receive Date: 20160311
  Receipt Date: 20160311
  Transmission Date: 20160526
  Serious: Yes (Other)
  Sender: FDA-Public Use
  Company Number: None

PATIENT
  Age: 36 Year
  Sex: Female
  Weight: 80.29 kg

DRUGS (1)
  1. MIRENA [Suspect]
     Active Substance: LEVONORGESTREL
     Indication: CONTRACEPTION
     Dosage: 5 YEAR IUD
     Route: 015
     Dates: start: 20130313, end: 20160130

REACTIONS (3)
  - Perforation [None]
  - Device dislocation [None]
  - Abdominal pain [None]

NARRATIVE: CASE EVENT DATE: 20160129
